FAERS Safety Report 16587373 (Version 1)
Quarter: 2019Q3

REPORT INFORMATION
  Report Type: Spontaneous
  Country: DE (occurrence: DE)
  Receive Date: 20190717
  Receipt Date: 20190717
  Transmission Date: 20191004
  Serious: Yes (Death, Hospitalization)
  Sender: FDA-Public Use
  Company Number: DE-TEVA-2019-DE-1078080

PATIENT
  Age: 54 Year
  Sex: Male

DRUGS (17)
  1. METOPROLOL. [Concomitant]
     Active Substance: METOPROLOL
     Dosage: 47.5 MG, 1-0-1-0
     Route: 065
  2. GLIMEPIRIDE. [Concomitant]
     Active Substance: GLIMEPIRIDE
     Dosage: 3 MG, 1-0-0-0
     Route: 065
  3. ATORVASTATIN [Concomitant]
     Active Substance: ATORVASTATIN
     Dosage: 20 MG, 0-1-0-0
     Route: 065
  4. NATRIUMPICOSULFAT [Concomitant]
     Dosage: NK MG, 0-0-16, DROPS
     Route: 065
  5. FOLIC ACID. [Concomitant]
     Active Substance: FOLIC ACID
     Dosage: 5 MG, 1X / WEEK; SATURDAYS
     Route: 065
  6. COLECALCIFEROL [Concomitant]
     Active Substance: CHOLECALCIFEROL
     Dosage: 20000 IE, 1X / WEEK
     Route: 065
  7. METFORMIN/SITAGLIPTIN [Concomitant]
     Active Substance: METFORMIN\SITAGLIPTIN
     Dosage: 50|1000 MG, 1-0-1-0
     Route: 065
  8. FUROSEMID [Concomitant]
     Active Substance: FUROSEMIDE
     Dosage: 40 MG, 1-0-0-0
     Route: 065
  9. METHOTREXATE. [Suspect]
     Active Substance: METHOTREXATE
     Dosage: 20 MG, 1X / WEEK; FRIDAYS
     Route: 058
  10. ASS 100 [Concomitant]
     Active Substance: ASPIRIN
     Dosage: 100 MG, 1-0-0-0
     Route: 065
  11. MORPHIN [Concomitant]
     Active Substance: MORPHINE
     Dosage: 5 MG, NEED
     Route: 058
  12. MORPHIN [Concomitant]
     Active Substance: MORPHINE
     Dosage: 30 MG, 1-1-0-1
     Route: 065
  13. ETORICOXIB. [Concomitant]
     Active Substance: ETORICOXIB
     Dosage: 90 MG, 1-0-0-0
     Route: 065
  14. AMLODIPINE W/OLMESARTAN [Concomitant]
     Active Substance: AMLODIPINE MALEATE\OLMESARTAN MEDOXOMIL
     Dosage: 40|5 MG, 1-0-1-0
     Route: 065
  15. PREDNISOLONE. [Suspect]
     Active Substance: PREDNISOLONE
     Dosage: 2 MG, 1-0-0-0
     Route: 065
  16. ESKETAMINE [Concomitant]
     Active Substance: ESKETAMINE
     Dosage: 10 MG, NEED
     Route: 058
  17. OMEPRAZOL [Concomitant]
     Active Substance: OMEPRAZOLE
     Dosage: 20 MG, 1-0-0-0
     Route: 065

REACTIONS (1)
  - Spinal pain [Unknown]

NARRATIVE: CASE EVENT DATE: 20171119
